FAERS Safety Report 11661130 (Version 2)
Quarter: 2016Q1

REPORT INFORMATION
  Report Type: Spontaneous
  Country: US (occurrence: US)
  Receive Date: 20151026
  Receipt Date: 20160106
  Transmission Date: 20160525
  Serious: Yes (Death, Hospitalization)
  Sender: FDA-Public Use
  Company Number: PHHY2015US126986

PATIENT
  Sex: Female
  Weight: 37 kg

DRUGS (2)
  1. PROMACTA [Suspect]
     Active Substance: ELTROMBOPAG OLAMINE
     Indication: IMMUNE THROMBOCYTOPENIC PURPURA
  2. PROMACTA [Suspect]
     Active Substance: ELTROMBOPAG OLAMINE
     Indication: PLATELET COUNT DECREASED
     Dosage: 25 MG, UNK
     Route: 048
     Dates: start: 201503

REACTIONS (6)
  - Upper limb fracture [Fatal]
  - Dementia [Fatal]
  - Urinary tract infection [Fatal]
  - Hypophagia [Unknown]
  - Confusional state [Unknown]
  - Acute kidney injury [Unknown]
